FAERS Safety Report 5572750-5 (Version None)
Quarter: 2007Q4

REPORT INFORMATION
  Report Type: 
  Country: None (occurrence: None)
  Receive Date: 20071222
  Receipt Date: 20071214
  Transmission Date: 20080405
  Serious: Yes (Disabling)
  Sender: FDA-Public Use
  Company Number: GB-PFIZER INC-2007106147

PATIENT
  Age: 63 Year
  Sex: Male
  Weight: 75 kg

DRUGS (4)
  1. CHANTIX [Suspect]
     Indication: SMOKING CESSATION THERAPY
     Route: 048
     Dates: start: 20071108, end: 20071112
  2. ERYTHROMYCIN [Concomitant]
     Indication: LOWER RESPIRATORY TRACT INFECTION
     Route: 048
     Dates: start: 20071024, end: 20071115
  3. LANSOPRAZOLE [Concomitant]
     Route: 048
  4. TERBUTALINE SULFATE [Concomitant]
     Route: 055

REACTIONS (2)
  - DYSPNOEA [None]
  - WHEEZING [None]
